FAERS Safety Report 4718312-0 (Version None)
Quarter: 2005Q3

REPORT INFORMATION
  Report Type: 
  Country: None (occurrence: None)
  Receive Date: 20050718
  Receipt Date: 20050718
  Transmission Date: 20060218
  Serious: Yes (Life-Threatening)
  Sender: FDA-Public Use
  Company Number: None

PATIENT
  Age: 64 Year
  Sex: Male
  Weight: 70.7611 kg

DRUGS (2)
  1. LINEZOLID [Suspect]
     Indication: PNEUMONIA
     Dosage: 600 MG Q12H IV
     Route: 042
     Dates: start: 20050629, end: 20050711
  2. FLUOXETINE [Suspect]
     Indication: DEPRESSION
     Dosage: 100 MG DAILY ORAL
     Route: 048
     Dates: start: 20050303, end: 20050711

REACTIONS (4)
  - CONFUSIONAL STATE [None]
  - LOSS OF CONSCIOUSNESS [None]
  - MYOCLONUS [None]
  - RESTLESSNESS [None]
